FAERS Safety Report 17704481 (Version 1)
Quarter: 2020Q2

REPORT INFORMATION
  Report Type: Spontaneous
  Country: ES (occurrence: ES)
  Receive Date: 20200424
  Receipt Date: 20200424
  Transmission Date: 20200714
  Serious: Yes (Death, Hospitalization, Other)
  Sender: FDA-Public Use
  Company Number: NVSC2020ES109412

PATIENT
  Age: 76 Year
  Sex: Female

DRUGS (3)
  1. LINEZOLID. [Suspect]
     Active Substance: LINEZOLID
     Indication: PRODUCT USED FOR UNKNOWN INDICATION
     Dosage: UNK
     Route: 065
     Dates: start: 201908
  2. SINEMET [Concomitant]
     Active Substance: CARBIDOPA\LEVODOPA
     Indication: PARKINSON^S DISEASE
     Dosage: UNK
     Route: 065
  3. LINEZOLID TEVA [Suspect]
     Active Substance: LINEZOLID
     Indication: ABSCESS LIMB
     Dosage: 1200 MG, QD (1200 MILLIGRAM DAILY;)
     Route: 048
     Dates: start: 201903, end: 20190812

REACTIONS (6)
  - Urinary tract infection [Unknown]
  - Tremor [Unknown]
  - Internal haemorrhage [Fatal]
  - Abdominal discomfort [Unknown]
  - Hyperhidrosis [Unknown]
  - Asthenia [Unknown]

NARRATIVE: CASE EVENT DATE: 201904
